FAERS Safety Report 6380404-0 (Version None)
Quarter: 2009Q4

REPORT INFORMATION
  Report Type: 
  Country: None (occurrence: None)
  Receive Date: 20090924
  Receipt Date: 20090910
  Transmission Date: 20100525
  Serious: Yes (Life-Threatening)
  Sender: FDA-Public Use
  Company Number: DSJ-2009-10643

PATIENT
  Age: 70 Year
  Sex: Male
  Weight: 45 kg

DRUGS (16)
  1. OLMESARTAN MEDOXOMIL [Suspect]
     Indication: HYPERTENSION
     Dosage: 10 MG (10 MG, 1 IN 1 D), PER ORAL
     Route: 048
     Dates: start: 20090716, end: 20090813
  2. PHENOBARBITAL TAB [Suspect]
     Indication: CEREBRAL HAEMATOMA
     Dosage: 120 MG (40 MG, 3 IN 1 D), PER ORAL
     Route: 048
     Dates: start: 20090712, end: 20090811
  3. PHENOBARBITAL TAB [Suspect]
     Indication: CEREBRAL HAEMORRHAGE
     Dosage: 120 MG (40 MG, 3 IN 1 D), PER ORAL
     Route: 048
     Dates: start: 20090712, end: 20090811
  4. PHENOBARBITAL TAB [Suspect]
     Indication: SUBARACHNOID HAEMORRHAGE
     Dosage: 120 MG (40 MG, 3 IN 1 D), PER ORAL
     Route: 048
     Dates: start: 20090712, end: 20090811
  5. CONIEL (BENIDIPINE HYDROCHLORIDE) (TABLET) (BENIDIPINE HYDROCHLORIDE) [Suspect]
     Indication: HYPERTENSION
     Dosage: 8 MG (4 MG, 2 IN 1 D), PER ORAL
     Route: 048
     Dates: start: 20090721, end: 20090814
  6. ZANTAC [Suspect]
     Indication: ULCER
     Dosage: 100 MG (50 MG, 2 IN 1 D), INTRAVENOUS DRIP
     Route: 041
     Dates: start: 20090713, end: 20090714
  7. NICARPINE (NICARPINE HYDROCHLORIDE) (INJECTION) (NICARPINE HYDROCHLORI [Suspect]
     Indication: HYPERTENSION
     Dosage: 70-120MG, INTRAVENOUS DRIP
     Route: 041
     Dates: start: 20090713, end: 20090717
  8. PIPERACILLIN SODIUM [Suspect]
     Indication: INFECTION PROPHYLAXIS
     Dosage: 2 GM (1 GM, 2 IN 1 D), INTRAVENOUS DRIP
     Route: 041
     Dates: start: 20090713, end: 20090721
  9. FAMOTIDINE [Suspect]
     Indication: ULCER
     Dosage: 40 MG (20 MG, 2 IN 1 D), INTRAVENOUS DRIP
     Route: 041
     Dates: start: 20090715, end: 20090805
  10. CEFTAZIDIME [Suspect]
     Indication: PNEUMONIA
     Dosage: 2 GM (1 GM, 2 IN 1 D), INTRAVENOUS DRIP
     Route: 041
     Dates: start: 20090722, end: 20090724
  11. CLINDAMYCIN [Suspect]
     Indication: PNEUMONIA
     Dosage: 1200 MG (600 MG, 2 IN 1 D) , INTRAVENOUS DRIP
     Route: 041
     Dates: start: 20090724, end: 20090728
  12. PIRETAZOL (CEFMETAZOLE SODIUM) (INJECTION) (CEFMETAZOLE SODIUM) [Suspect]
     Indication: PNEUMONIA
     Dosage: 2 GM (1 GM, 2 IN 1 D), INTRAVENOUS DRIP
     Route: 041
     Dates: start: 20090731, end: 20090803
  13. CIPROFLOXACIN HYDROCHLORIDE [Suspect]
     Indication: PNEUMONIA
     Dosage: 600 MG (300 MG, 2 IN 1 D) , INTRAVENOUS DRIP
     Route: 041
     Dates: start: 20090803, end: 20090807
  14. GLUCONSAN K (POTASSIUM GLUCONATE) (TABLET) (POTASSIUM GLUCONATE) [Concomitant]
  15. SODIUM CHLORIDE (SODIUM CHLORIDE) (ORAL POWDER) (SODIUM CHLORIDE) [Concomitant]
  16. BIOFERMIN (LACTOBACILLUS ACIDOPHILUS, BACILLUS SUBTILIS, STREPTOCOCCUS [Concomitant]

REACTIONS (3)
  - HYPERTENSION [None]
  - STEVENS-JOHNSON SYNDROME [None]
  - TOXIC EPIDERMAL NECROLYSIS [None]
